FAERS Safety Report 11874054 (Version 1)
Quarter: 2015Q4

REPORT INFORMATION
  Report Type: Spontaneous
  Country: US (occurrence: US)
  Receive Date: 20151229
  Receipt Date: 20151229
  Transmission Date: 20160305
  Serious: No
  Sender: FDA-Public Use
  Company Number: US-BRISTOL-MYERS SQUIBB COMPANY-BMS-2015-090716

PATIENT
  Sex: Male

DRUGS (1)
  1. OPDIVO [Suspect]
     Active Substance: NIVOLUMAB
     Indication: RENAL CELL CARCINOMA
     Route: 042

REACTIONS (7)
  - Chills [Recovered/Resolved]
  - Ear pain [Not Recovered/Not Resolved]
  - Asthenia [Recovered/Resolved]
  - Tremor [Recovered/Resolved]
  - Insomnia [Unknown]
  - Rash [Recovering/Resolving]
  - Nausea [Recovered/Resolved]
